FAERS Safety Report 11984115 (Version 1)
Quarter: 2016Q1

REPORT INFORMATION
  Report Type: Spontaneous
  Country: US (occurrence: US)
  Receive Date: 20160201
  Receipt Date: 20160201
  Transmission Date: 20160526
  Serious: Yes (Hospitalization)
  Sender: FDA-Public Use
  Company Number: US-BAYER-2016-014851

PATIENT
  Age: 41 Year
  Sex: Female

DRUGS (1)
  1. MIRENA [Suspect]
     Active Substance: LEVONORGESTREL
     Dosage: 20 MCG/24HR, CONT
     Route: 015
     Dates: start: 20131114, end: 20150904

REACTIONS (12)
  - Abortion missed [None]
  - Device issue [None]
  - Abdominal distension [None]
  - Nausea [None]
  - Device dislocation [None]
  - Pregnancy with contraceptive device [None]
  - Drug ineffective [None]
  - Vomiting [None]
  - Internal injury [None]
  - Abdominal pain [None]
  - Medical device discomfort [None]
  - Abortion infected [None]

NARRATIVE: CASE EVENT DATE: 20150615
